FAERS Safety Report 11858064 (Version 1)
Quarter: 2015Q4

REPORT INFORMATION
  Report Type: Spontaneous
  Country: JP (occurrence: JP)
  Receive Date: 20151222
  Receipt Date: 20151222
  Transmission Date: 20160305
  Serious: Yes (Hospitalization)
  Sender: FDA-Public Use
  Company Number: PHHY2015JP167067

PATIENT
  Age: 64 Year
  Sex: Male

DRUGS (1)
  1. FAMVIR [Suspect]
     Active Substance: FAMCICLOVIR
     Indication: HERPES SIMPLEX
     Dosage: 250 MG, TID
     Route: 048
     Dates: start: 20151202, end: 20151204

REACTIONS (1)
  - Abnormal behaviour [Recovered/Resolved]

NARRATIVE: CASE EVENT DATE: 20151204
